FAERS Safety Report 10182556 (Version 1)
Quarter: 2014Q2

REPORT INFORMATION
  Report Type: Spontaneous
  Country: US (occurrence: None)
  Receive Date: 20140516
  Receipt Date: 20140516
  Transmission Date: 20141212
  Serious: Yes (Life-Threatening, Hospitalization, Other)
  Sender: FDA-Public Use
  Company Number: ADR-2014-00821

PATIENT
  Age: 36 Year
  Sex: Male

DRUGS (1)
  1. BACLOFEN [Suspect]
     Indication: MUSCLE SPASTICITY

REACTIONS (10)
  - Thermal burn [None]
  - Cold sweat [None]
  - Hyperhidrosis [None]
  - Unresponsive to stimuli [None]
  - Malaise [None]
  - Dyspnoea [None]
  - Incorrect dose administered [None]
  - Device malfunction [None]
  - Aphasia [None]
  - Pyrexia [None]
